FAERS Safety Report 6971644-8 (Version None)
Quarter: 2010Q3

REPORT INFORMATION
  Report Type: 
  Country: None (occurrence: None)
  Receive Date: 20100908
  Receipt Date: 20100827
  Transmission Date: 20110219
  Serious: Yes (Hospitalization, Other)
  Sender: FDA-Public Use
  Company Number: PHHY2010MX57294

PATIENT
  Age: 53 Year
  Sex: Female

DRUGS (2)
  1. EXFORGE HCT [Suspect]
     Indication: HYPERTENSION
     Dosage: 1 TABLET(160/5/12.5) PER DAY
  2. PRISTIQ [Concomitant]
     Dosage: UNK

REACTIONS (6)
  - APPENDIX DISORDER [None]
  - EAR DISCOMFORT [None]
  - FEELING HOT [None]
  - HYPERTENSION [None]
  - SURGERY [None]
  - TACHYCARDIA [None]
